FAERS Safety Report 5817646-6 (Version None)
Quarter: 2008Q3

REPORT INFORMATION
  Report Type: 
  Country: None (occurrence: None)
  Receive Date: 20080717
  Receipt Date: 20080703
  Transmission Date: 20090109
  Serious: Yes (Other)
  Sender: FDA-Public Use
  Company Number: 19725

PATIENT
  Age: 63 Year
  Sex: Female
  Weight: 57 kg

DRUGS (1)
  1. NOVOPLATINUM [Suspect]
     Indication: OVARIAN CANCER
     Dates: start: 20080520, end: 20080520

REACTIONS (6)
  - HYPERHIDROSIS [None]
  - HYPOTENSION [None]
  - LOSS OF CONSCIOUSNESS [None]
  - PRESYNCOPE [None]
  - TACHYCARDIA [None]
  - URINARY INCONTINENCE [None]
